FAERS Safety Report 12396476 (Version 1)
Quarter: 2016Q2

REPORT INFORMATION
  Report Type: Spontaneous
  Country: US (occurrence: None)
  Receive Date: 20160523
  Receipt Date: 20160523
  Transmission Date: 20160815
  Serious: Yes (Other)
  Sender: FDA-Public Use
  Company Number: None

PATIENT
  Age: 62 Year
  Weight: 127.01 kg

DRUGS (3)
  1. GAMMAGARD S/D [Suspect]
     Active Substance: HUMAN IMMUNOGLOBULIN G
     Indication: NEUROPATHY PERIPHERAL
     Route: 042
     Dates: start: 20151118
  2. ENALAPRIL [Concomitant]
     Active Substance: ENALAPRIL
  3. MULTIPLE VITAMIN [Concomitant]
     Active Substance: VITAMINS

REACTIONS (4)
  - Rash [None]
  - Pulmonary embolism [None]
  - Sinus disorder [None]
  - Deep vein thrombosis [None]

NARRATIVE: CASE EVENT DATE: 20160207
